FAERS Safety Report 4706808-7 (Version None)
Quarter: 2005Q3

REPORT INFORMATION
  Report Type: 
  Country: None (occurrence: None)
  Receive Date: 20050705
  Receipt Date: 20050622
  Transmission Date: 20060218
  Serious: Yes (Hospitalization, Other)
  Sender: FDA-Public Use
  Company Number: 2003023517

PATIENT
  Age: 62 Year
  Sex: Female
  Weight: 68.0396 kg

DRUGS (5)
  1. TIKOSYN [Suspect]
     Indication: ATRIAL FIBRILLATION
     Dosage: 500 MCG (BID), ORAL
     Route: 048
     Dates: start: 20000101
  2. DILTIAZEM [Suspect]
     Indication: ATRIAL FIBRILLATION
     Dosage: INTRAVENOUS
     Route: 042
     Dates: start: 20030501, end: 20030501
  3. ALTACE [Concomitant]
  4. ASPIRIN [Concomitant]
  5. ZETIA [Concomitant]

REACTIONS (9)
  - AORTIC VALVE INCOMPETENCE [None]
  - ATRIAL FIBRILLATION [None]
  - BLOOD THYROID STIMULATING HORMONE INCREASED [None]
  - BRADYCARDIA [None]
  - DISEASE RECURRENCE [None]
  - DIZZINESS [None]
  - DRUG INTERACTION [None]
  - MITRAL VALVE INCOMPETENCE [None]
  - SINUS ARRHYTHMIA [None]
